FAERS Safety Report 6959581-6 (Version None)
Quarter: 2010Q3

REPORT INFORMATION
  Report Type: 
  Country: None (occurrence: None)
  Receive Date: 20100825
  Receipt Date: 20100819
  Transmission Date: 20110219
  Serious: Yes (Hospitalization)
  Sender: FDA-Public Use
  Company Number: 2010SP018256

PATIENT
  Age: 82 Year
  Sex: Female

DRUGS (13)
  1. MIRTAZAPINE [Suspect]
     Indication: DECREASED APPETITE
     Dosage: 15 MG;HS;PO
     Route: 048
     Dates: start: 20100320, end: 20100323
  2. MIRTAZAPINE [Suspect]
     Indication: DEPRESSION
     Dosage: 15 MG;HS;PO
     Route: 048
     Dates: start: 20100320, end: 20100323
  3. MIRTAZAPINE [Suspect]
     Indication: INSOMNIA
     Dosage: 15 MG;HS;PO
     Route: 048
     Dates: start: 20100320, end: 20100323
  4. LANSOPRAZOLE (CON.) [Concomitant]
  5. IRSOGLADINE MALEATE (CON.) [Concomitant]
  6. PAROXETINE HYDROCHLORIDE HYDRATE (CON.) [Concomitant]
  7. FLUNITRAZEPAM (CON.) [Concomitant]
  8. MAGNESIUM OXIDE (CON.) [Concomitant]
  9. SODIUM PICOSULFATE HYDRATE (CON.) [Concomitant]
  10. SENNOSIDE (CON.) [Concomitant]
  11. ROHYPNOL (CON.) [Concomitant]
  12. PAXIL (CON.) [Concomitant]
  13. DIMETHICONE (CON.) [Concomitant]

REACTIONS (7)
  - CONVULSION [None]
  - DIZZINESS [None]
  - HEPATIC FUNCTION ABNORMAL [None]
  - HYPOAESTHESIA [None]
  - IMMOBILE [None]
  - LIVER DISORDER [None]
  - TREMOR [None]
